FAERS Safety Report 4512077-3 (Version None)
Quarter: 2004Q4

REPORT INFORMATION
  Report Type: 
  Country: None (occurrence: None)
  Receive Date: 20041129
  Receipt Date: 20040705
  Transmission Date: 20050328
  Serious: Yes (Life-Threatening, Hospitalization)
  Sender: FDA-Public Use
  Company Number: DE-ROCHE-372972

PATIENT
  Age: 64 Year
  Sex: Male

DRUGS (29)
  1. MYCOPHENOLATE MOFETIL [Suspect]
     Route: 065
     Dates: start: 20040630, end: 20041012
  2. MYCOPHENOLATE MOFETIL [Suspect]
     Route: 065
     Dates: start: 20041013
  3. DACLIZUMAB [Suspect]
     Route: 042
     Dates: start: 20040630, end: 20040630
  4. DACLIZUMAB [Suspect]
     Route: 042
  5. CYCLOSPORINE [Suspect]
     Dosage: STOPPED DUE TO EVENT SUSPECTED HERNIA.
     Route: 048
     Dates: start: 20040630, end: 20041105
  6. CYCLOSPORINE [Suspect]
     Dosage: DOSAGE INCREASED DUE TO REJECTION EPISODE.
     Route: 048
     Dates: start: 20041015
  7. PREDNISOLONE [Suspect]
     Route: 042
     Dates: start: 20040630, end: 20040701
  8. PREDNISOLONE [Suspect]
     Dosage: REJECTION EPISODE.
     Route: 042
     Dates: start: 20041019
  9. PREDNISOLONE [Suspect]
     Route: 048
     Dates: start: 20040630
  10. PREDNISOLONE [Suspect]
     Route: 048
     Dates: start: 20040701
  11. PREDNISOLONE [Suspect]
     Dosage: REJECTION EPISODE.
     Route: 048
     Dates: start: 20041022
  12. PREDNISOLONE [Suspect]
     Route: 048
     Dates: start: 20041025
  13. PREDNISOLONE [Suspect]
     Route: 048
     Dates: start: 20041028
  14. TACROLIMUS [Suspect]
     Route: 065
     Dates: start: 20041104
  15. PANTOZOL [Concomitant]
     Route: 048
     Dates: start: 20040630
  16. BELOC-ZOK [Concomitant]
     Route: 048
     Dates: start: 20040701
  17. EUTHYROX [Concomitant]
     Route: 048
     Dates: start: 20010615
  18. SPASMEX [Concomitant]
     Route: 048
     Dates: start: 20040701
  19. AMPICILLIN SODIUM/SULBACTAM SODIUM [Concomitant]
     Route: 042
     Dates: start: 20040630
  20. SULFAMETHOXAZOLE AND TRIMETHOPRIM [Concomitant]
     Dates: start: 20040702
  21. ACETYLCYSTEINE [Concomitant]
     Dates: start: 20040711, end: 20040716
  22. ACETYLSALICYLSAURE [Concomitant]
     Dates: start: 20041028
  23. CIPROFLOXACIN [Concomitant]
     Dosage: STOPPED ON 29 JULY AND RESTARTED ON 27 OCTOBER 2004.
     Dates: start: 20040724, end: 20041102
  24. DIGITOXIN TAB [Concomitant]
     Dates: start: 20040702, end: 20040707
  25. FUROSEMIDE [Concomitant]
     Dates: start: 20040703, end: 20041104
  26. FLUVASTATIN [Concomitant]
     Dates: start: 20040702
  27. KALIUM-DURILES [Concomitant]
     Dosage: STOPPED ON 10 JULY AND REINTRODUCED ON 26 OCTOBER 2004.
     Dates: start: 20040706
  28. RISEDRONATE NATRIUM [Concomitant]
     Dates: start: 20040702, end: 20040717
  29. TEMAZEPAM [Concomitant]
     Dates: start: 20040703, end: 20040726

REACTIONS (7)
  - ABDOMINAL HERNIA [None]
  - ANGINA PECTORIS [None]
  - ARRHYTHMIA [None]
  - ATRIAL FIBRILLATION [None]
  - HYPERVOLAEMIA [None]
  - MYOCARDIAL INFARCTION [None]
  - TACHYCARDIA [None]
